FAERS Safety Report 4571608-8 (Version None)
Quarter: 2005Q1

REPORT INFORMATION
  Report Type: 
  Country: None (occurrence: None)
  Receive Date: 20050203
  Receipt Date: 20050203
  Transmission Date: 20050727
  Serious: No
  Sender: FDA-Public Use
  Company Number: None

PATIENT
  Sex: Female
  Weight: 63.9572 kg

DRUGS (2)
  1. WARFARIN SODIUM [Suspect]
     Indication: ANTICOAGULANT THERAPY
     Dosage: 4 MG M+F 2 MG ON ALL OTHER DAYS
     Dates: start: 20021201
  2. WARFARIN SODIUM [Suspect]
     Indication: ANTICOAGULANT THERAPY
     Dosage: 4 MG M+F 2 MG ON ALL OTHER DAYS
     Dates: start: 20040401

REACTIONS (2)
  - PHARMACEUTICAL PRODUCT COMPLAINT [None]
  - THERAPEUTIC RESPONSE DECREASED [None]
